FAERS Safety Report 9397470 (Version 1)
Quarter: 2013Q3

REPORT INFORMATION
  Report Type: Spontaneous
  Country: US (occurrence: US)
  Receive Date: 20130712
  Receipt Date: 20130712
  Transmission Date: 20140515
  Serious: Yes (Other)
  Sender: FDA-Public Use
  Company Number: US-SANOFI-AVENTIS-2013SA070075

PATIENT
  Age: 71 Year
  Sex: Female

DRUGS (16)
  1. LANTUS SOLOSTAR [Suspect]
     Dosage: 4-5 YEARS DOSE:45 UNIT(S)
     Route: 065
  2. LANTUS SOLOSTAR [Suspect]
     Dosage: 4-5 YEARS DOSE:45 UNIT(S)
     Route: 065
  3. LANTUS SOLOSTAR [Suspect]
     Dosage: 4-5 YEARS DOSE:45 UNIT(S)
     Route: 065
  4. LANTUS SOLOSTAR [Suspect]
     Dosage: 4-5 YEARS DOSE:45 UNIT(S)
     Route: 065
  5. LANTUS SOLOSTAR [Suspect]
     Dosage: 4-5 YEARS DOSE:45 UNIT(S)
     Route: 065
  6. LANTUS SOLOSTAR [Suspect]
     Dosage: 4-5 YEARS DOSE:45 UNIT(S)
     Route: 065
  7. LANTUS SOLOSTAR [Suspect]
     Dosage: 4-5 YEARS DOSE:45 UNIT(S)
     Route: 065
  8. LANTUS SOLOSTAR [Suspect]
     Dosage: 4-5 YEARS DOSE:45 UNIT(S)
     Route: 065
  9. SOLOSTAR [Suspect]
     Dosage: 4-5 YEARS
  10. SOLOSTAR [Suspect]
     Dosage: 4-5 YEARS
  11. SOLOSTAR [Suspect]
     Dosage: 4-5 YEARS
  12. SOLOSTAR [Suspect]
     Dosage: 4-5 YEARS
  13. SOLOSTAR [Suspect]
     Dosage: 4-5 YEARS
  14. SOLOSTAR [Suspect]
     Dosage: 4-5 YEARS
  15. SOLOSTAR [Suspect]
     Dosage: 4-5 YEARS
  16. SOLOSTAR [Suspect]
     Dosage: 4-5 YEARS

REACTIONS (6)
  - Intervertebral disc protrusion [Unknown]
  - Sciatic nerve injury [Unknown]
  - Loss of consciousness [Unknown]
  - Muscle spasms [Not Recovered/Not Resolved]
  - Pain [Unknown]
  - Vomiting [Unknown]
